FAERS Safety Report 6511082-5 (Version None)
Quarter: 2009Q4

REPORT INFORMATION
  Report Type: 
  Country: None (occurrence: None)
  Receive Date: 20091222
  Receipt Date: 20090223
  Transmission Date: 20100525
  Serious: No
  Sender: FDA-Public Use
  Company Number: US-ASTRAZENECA-2009UW05001

PATIENT
  Age: 84 Year
  Sex: Male
  Weight: 72.6 kg

DRUGS (6)
  1. CRESTOR [Suspect]
     Indication: BLOOD CHOLESTEROL INCREASED
     Route: 048
     Dates: start: 20080201, end: 20090214
  2. CRESTOR [Suspect]
     Route: 048
     Dates: start: 20090214
  3. SYNTHROID [Concomitant]
     Indication: HYPOTHYROIDISM
  4. METOPROLOL SUCCINATE [Concomitant]
     Route: 048
  5. FISH OIL [Concomitant]
  6. ASPIRIN [Concomitant]

REACTIONS (2)
  - FALL [None]
  - MYALGIA [None]
